FAERS Safety Report 7820783-8 (Version None)
Quarter: 2011Q4

REPORT INFORMATION
  Report Type: 
  Country: None (occurrence: None)
  Receive Date: 20111018
  Receipt Date: 20111013
  Transmission Date: 20120403
  Serious: Yes (Hospitalization, Disabling, Other)
  Sender: FDA-Public Use
  Company Number: US-MERCK-1012USA02522

PATIENT
  Age: 66 Year
  Sex: Female

DRUGS (2)
  1. ALENDRONATE SODIUM [Suspect]
     Indication: OSTEOPOROSIS
     Route: 048
     Dates: start: 20080401, end: 20081201
  2. FOSAMAX [Suspect]
     Indication: OSTEOPOROSIS
     Route: 048
     Dates: start: 19970301, end: 20091117

REACTIONS (20)
  - HYPERTENSION [None]
  - MASTOID DISORDER [None]
  - HYPERCHOLESTEROLAEMIA [None]
  - FEMUR FRACTURE [None]
  - IMPAIRED HEALING [None]
  - OSTEOPOROSIS [None]
  - MULTIPLE FRACTURES [None]
  - CORNEAL ABRASION [None]
  - DEVICE MATERIAL ISSUE [None]
  - FRACTURE NONUNION [None]
  - LOW TURNOVER OSTEOPATHY [None]
  - MEDICAL DEVICE COMPLICATION [None]
  - HIP FRACTURE [None]
  - GASTROOESOPHAGEAL REFLUX DISEASE [None]
  - BREAST CANCER [None]
  - DEVICE DISLOCATION [None]
  - FRACTURE [None]
  - ARTHROPATHY [None]
  - VITAMIN D DEFICIENCY [None]
  - OSTEOPENIA [None]
